FAERS Safety Report 11024682 (Version 1)
Quarter: 2015Q2

REPORT INFORMATION
  Report Type: Spontaneous
  Country: US (occurrence: None)
  Receive Date: 20150413
  Receipt Date: 20150413
  Transmission Date: 20150821
  Serious: Yes (Hospitalization)
  Sender: FDA-Public Use
  Company Number: None

PATIENT
  Age: 76 Year
  Sex: Male
  Weight: 66.2 kg

DRUGS (13)
  1. MECLIZINE [Concomitant]
     Active Substance: MECLIZINE\MECLIZINE HYDROCHLORIDE
  2. HYDROCODONE BITARTRATE AND ACETAMINOPHEN [Concomitant]
     Active Substance: ACETAMINOPHEN\HYDROCODONE BITARTRATE
  3. ALBUTEROL SULFATE. [Concomitant]
     Active Substance: ALBUTEROL SULFATE
  4. BUDESONIDE. [Concomitant]
     Active Substance: BUDESONIDE
  5. FISH OIL [Concomitant]
     Active Substance: FISH OIL
  6. ACYCLOVIR. [Concomitant]
     Active Substance: ACYCLOVIR
  7. ALLOPURINOL. [Concomitant]
     Active Substance: ALLOPURINOL
  8. LISINOPRIL. [Concomitant]
     Active Substance: LISINOPRIL
  9. ATORVASTATIN [Concomitant]
     Active Substance: ATORVASTATIN
  10. OMEPRAZOLE. [Concomitant]
     Active Substance: OMEPRAZOLE
  11. POTASSIUM CHLORIDE. [Concomitant]
     Active Substance: POTASSIUM CHLORIDE
  12. AMOXICILLIN-CLAVULANATE [Concomitant]
     Active Substance: AMOXICILLIN\CLAVULANIC ACID
  13. RUXOLITINIB 5 MG TABS [Suspect]
     Active Substance: RUXOLITINIB
     Indication: CHRONIC MYELOID LEUKAEMIA
     Route: 048
     Dates: start: 20150317, end: 20150409

REACTIONS (5)
  - Anaemia [None]
  - Haematoma [None]
  - Dyspnoea [None]
  - Musculoskeletal disorder [None]
  - Local swelling [None]

NARRATIVE: CASE EVENT DATE: 20150409
